FAERS Safety Report 10028319 (Version 1)
Quarter: 2014Q1

REPORT INFORMATION
  Report Type: Spontaneous
  Country: US (occurrence: None)
  Receive Date: 20140307
  Receipt Date: 20140307
  Transmission Date: 20141002
  Serious: Yes (Hospitalization, Other)
  Sender: FDA-Public Use
  Company Number: 2014/013

PATIENT
  Age: 77 Year
  Sex: Male
  Weight: 84 kg

DRUGS (8)
  1. LEVOFLOXACIN [Suspect]
     Indication: DIVERTICULITIS
     Route: 042
  2. ALLOPURINOL [Concomitant]
  3. DILTIAZEM CD [Concomitant]
  4. FAMOTIDINE [Concomitant]
  5. FUROSEMIDE [Concomitant]
  6. LEVOTHYROXINE [Concomitant]
  7. PAROXETINE [Concomitant]
  8. WARFARIN [Concomitant]

REACTIONS (3)
  - Dyskinesia [None]
  - Blood creatinine increased [None]
  - Dysarthria [None]
